FAERS Safety Report 13576583 (Version 2)
Quarter: 2017Q2

REPORT INFORMATION
  Report Type: Report from Study
  Country: US (occurrence: BR)
  Receive Date: 20170524
  Receipt Date: 20170606
  Transmission Date: 20170830
  Serious: No
  Sender: FDA-Public Use
  Company Number: US-SUNOVION-2017SUN002161

PATIENT
  Sex: Female
  Weight: 50 kg

DRUGS (1)
  1. INDACATEROL AND GLYCOPYRROLATE [Suspect]
     Active Substance: GLYCOPYRROLATE\INDACATEROL MALEATE
     Indication: BRONCHITIS CHRONIC
     Dosage: 1 DF (110/50 MCG), BID
     Route: 065
     Dates: start: 20170427

REACTIONS (2)
  - Inappropriate schedule of drug administration [Unknown]
  - Memory impairment [Unknown]
